FAERS Safety Report 23010175 (Version 2)
Quarter: 2023Q4

REPORT INFORMATION
  Report Type: Spontaneous
  Country: LU (occurrence: LU)
  Receive Date: 20230929
  Receipt Date: 20231121
  Transmission Date: 20240110
  Serious: Yes (Death, Life-Threatening, Hospitalization, Disabling, Congenital Anomaly)
  Sender: FDA-Public Use
  Company Number: None

PATIENT
  Sex: Male
  Weight: 0.56 kg

DRUGS (1)
  1. KEPPRA [Suspect]
     Active Substance: LEVETIRACETAM
     Indication: Epilepsy
     Dosage: UNK
     Route: 050

REACTIONS (8)
  - Premature baby [Fatal]
  - Congenital diaphragmatic anomaly [Fatal]
  - Talipes [Fatal]
  - Neonatal respiratory failure [Fatal]
  - Foetal growth restriction [Fatal]
  - Hypospadias [Fatal]
  - Foetal malnutrition [Fatal]
  - Paternal exposure during pregnancy [Fatal]

NARRATIVE: CASE EVENT DATE: 20230904
